FAERS Safety Report 6371643-3 (Version None)
Quarter: 2009Q3

REPORT INFORMATION
  Report Type: 
  Country: None (occurrence: None)
  Receive Date: 20090923
  Receipt Date: 20090622
  Transmission Date: 20100115
  Serious: No
  Sender: FDA-Public Use
  Company Number: US-ASTRAZENECA-2008UW13262

PATIENT
  Age: 49 Year
  Sex: Male
  Weight: 78 kg

DRUGS (27)
  1. SEROQUEL [Suspect]
     Indication: INSOMNIA
     Route: 048
     Dates: start: 20010901
  2. SEROQUEL [Suspect]
     Indication: ANGER
     Route: 048
     Dates: start: 20010901
  3. SEROQUEL [Suspect]
     Indication: ANXIETY DISORDER
     Route: 048
     Dates: start: 20010901
  4. SEROQUEL [Suspect]
     Route: 048
     Dates: start: 20010901
  5. SEROQUEL [Suspect]
     Route: 048
     Dates: start: 20010901
  6. SEROQUEL [Suspect]
     Route: 048
     Dates: start: 20010901
  7. SEROQUEL [Suspect]
     Route: 048
     Dates: start: 20080101
  8. SEROQUEL [Suspect]
     Route: 048
     Dates: start: 20080101
  9. SEROQUEL [Suspect]
     Route: 048
     Dates: start: 20080101
  10. SEROQUEL [Suspect]
     Route: 048
  11. SEROQUEL [Suspect]
     Route: 048
  12. SEROQUEL [Suspect]
     Route: 048
  13. RISPERDAL [Concomitant]
  14. ADVAIR HFA [Concomitant]
     Indication: ASTHMA
  15. NEXIUM [Concomitant]
  16. ULTRAM [Concomitant]
     Indication: PAIN
  17. FLOMAX [Concomitant]
     Indication: BLADDER DISORDER
  18. ZOCOR [Concomitant]
  19. WELLBUTRIN XL [Concomitant]
  20. LYRICA [Concomitant]
  21. OXCARBAZEPINE [Concomitant]
  22. LEXAPRO [Concomitant]
  23. NASONEX [Concomitant]
  24. DICOFENAULET [Concomitant]
     Indication: ARTHRITIS
  25. ARTHROTEC [Concomitant]
  26. XANAX [Concomitant]
  27. ALBUTEROL [Concomitant]

REACTIONS (9)
  - ADVERSE DRUG REACTION [None]
  - BLOOD CHOLESTEROL INCREASED [None]
  - FEELING ABNORMAL [None]
  - HANGOVER [None]
  - MALAISE [None]
  - MEMORY IMPAIRMENT [None]
  - SOMNOLENCE [None]
  - TREMOR [None]
  - WEIGHT INCREASED [None]
